FAERS Safety Report 18193680 (Version 1)
Quarter: 2020Q3

REPORT INFORMATION
  Report Type: Spontaneous
  Country: US (occurrence: US)
  Receive Date: 20200825
  Receipt Date: 20200825
  Transmission Date: 20201103
  Serious: Yes (Other)
  Sender: FDA-Public Use
  Company Number: US-PURDUE-USA-2020-0162548

PATIENT

DRUGS (1)
  1. OXYCONTIN [Suspect]
     Active Substance: OXYCODONE HYDROCHLORIDE
     Indication: PAIN
     Dosage: UNK
     Route: 048

REACTIONS (11)
  - Dyspnoea [Unknown]
  - Temperature intolerance [Unknown]
  - Mental impairment [Unknown]
  - Depression [Unknown]
  - Drug dependence [Unknown]
  - Weight increased [Unknown]
  - Impaired work ability [Unknown]
  - Insomnia [Unknown]
  - Hypertension [Unknown]
  - Neuralgia [Unknown]
  - Hyperhidrosis [Unknown]

NARRATIVE: CASE EVENT DATE: 200709
